FAERS Safety Report 7619316-0 (Version None)
Quarter: 2011Q3

REPORT INFORMATION
  Report Type: 
  Country: None (occurrence: None)
  Receive Date: 20110718
  Receipt Date: 20110711
  Transmission Date: 20111222
  Serious: No
  Sender: FDA-Public Use
  Company Number: US-B.I. PHARMACEUTICALS,INC./RIDGEFIELD-2011-BP-17408BP

PATIENT
  Sex: Male

DRUGS (5)
  1. PRADAXA [Suspect]
     Indication: ATRIAL FIBRILLATION
     Dosage: 300 MG
     Route: 048
     Dates: start: 20110101
  2. SPIRIVA [Concomitant]
     Indication: CARDIAC FAILURE CONGESTIVE
     Dosage: 18 MCG
     Route: 055
     Dates: start: 20100101
  3. PLAVIX [Concomitant]
     Indication: ATRIAL FIBRILLATION
     Dosage: 75 MG
     Route: 048
     Dates: start: 20070101
  4. ZOCOR [Concomitant]
     Indication: BLOOD CHOLESTEROL INCREASED
     Dosage: 40 MG
     Route: 048
     Dates: start: 20070101
  5. COREG [Concomitant]
     Indication: CARDIOMYOPATHY
     Dosage: 25 MG
     Route: 048
     Dates: start: 20100101

REACTIONS (3)
  - FATIGUE [None]
  - HEADACHE [None]
  - DIZZINESS [None]
